FAERS Safety Report 22135085 (Version 1)
Quarter: 2023Q1

REPORT INFORMATION
  Report Type: Spontaneous
  Country: US (occurrence: None)
  Receive Date: 20230323
  Receipt Date: 20230323
  Transmission Date: 20230418
  Serious: Yes (Hospitalization, Disabling, Other)
  Sender: FDA-Public Use
  Company Number: None

PATIENT
  Age: 19 Year
  Sex: Male
  Weight: 90 kg

DRUGS (3)
  1. ALKA-SELTZER PLUS COLD AND FLU [Suspect]
     Active Substance: ACETAMINOPHEN\CHLORPHENIRAMINE\DEXTROMETHORPHAN\PHENYLEPHRINE
     Indication: Nasopharyngitis
     Dosage: OTHER QUANTITY : 2 TABLET(S);?
     Route: 048
     Dates: start: 20230214, end: 20230215
  2. HYDROXYZINE [Concomitant]
     Active Substance: HYDROXYZINE HYDROCHLORIDE
  3. Multivitamin for men [Concomitant]

REACTIONS (12)
  - Serotonin syndrome [None]
  - Contraindicated product administered [None]
  - Visual impairment [None]
  - Nervous system disorder [None]
  - Withdrawal syndrome [None]
  - Eye injury [None]
  - Educational problem [None]
  - Impaired work ability [None]
  - Impaired driving ability [None]
  - Physical product label issue [None]
  - Drug interaction [None]
  - Impaired quality of life [None]

NARRATIVE: CASE EVENT DATE: 20230215
